FAERS Safety Report 18829450 (Version 1)
Quarter: 2021Q1

REPORT INFORMATION
  Report Type: Spontaneous
  Country: US (occurrence: US)
  Receive Date: 20210201
  Receipt Date: 20210201
  Transmission Date: 20210419
  Serious: No
  Sender: FDA-Public Use
  Company Number: US-ABBVIE-20K-163-3574520-00

PATIENT
  Age: 76 Year
  Sex: Female
  Weight: 74 kg

DRUGS (8)
  1. METOPROLOL. [Concomitant]
     Active Substance: METOPROLOL
     Indication: HEART RATE IRREGULAR
  2. HUMIRA [Suspect]
     Active Substance: ADALIMUMAB
     Route: 058
  3. HUMIRA [Suspect]
     Active Substance: ADALIMUMAB
     Indication: CROHN^S DISEASE
     Route: 058
     Dates: start: 2017
  4. SPIRONOLACTONE. [Concomitant]
     Active Substance: SPIRONOLACTONE
     Indication: HYPERTENSION
  5. HUMIRA [Suspect]
     Active Substance: ADALIMUMAB
     Route: 058
  6. VITAMIN D3 [Concomitant]
     Active Substance: CHOLECALCIFEROL
     Indication: SUPPLEMENTATION THERAPY
  7. PROBIOTIC [Concomitant]
     Active Substance: PROBIOTICS NOS
     Indication: SUPPLEMENTATION THERAPY
  8. DIGESTIVE ADVANTAGE [Concomitant]
     Indication: SUPPLEMENTATION THERAPY

REACTIONS (7)
  - Swelling [Recovered/Resolved]
  - Gastrointestinal inflammation [Recovered/Resolved]
  - Product physical consistency issue [Unknown]
  - Product physical consistency issue [Unknown]
  - Pain [Recovered/Resolved]
  - Device issue [Unknown]
  - Device issue [Unknown]

NARRATIVE: CASE EVENT DATE: 202007
